FAERS Safety Report 10175858 (Version 5)
Quarter: 2015Q1

REPORT INFORMATION
  Report Type: Report from Study
  Country: BR (occurrence: BR)
  Receive Date: 20140516
  Receipt Date: 20150127
  Transmission Date: 20150720
  Serious: Yes (Hospitalization, Other)
  Sender: FDA-Public Use
  Company Number: BR-ABBVIE-14P-020-1235024-00

PATIENT
  Age: 57 Year
  Sex: Female
  Weight: 65 kg

DRUGS (11)
  1. METHOTREXATE [Concomitant]
     Active Substance: METHOTREXATE
     Indication: PSORIATIC ARTHROPATHY
     Dosage: FOR 5 YEARS
  2. METHOTREXATE [Concomitant]
     Active Substance: METHOTREXATE
     Dosage: FOR 5 YEARS
     Dates: start: 201404
  3. ATENOLOL. [Concomitant]
     Active Substance: ATENOLOL
     Indication: HYPERTENSION
     Route: 048
     Dates: start: 20030101
  4. LOSARTAN [Concomitant]
     Active Substance: LOSARTAN
     Indication: HYPERTENSION
     Dosage: IN THE MORNING AND IN THE EVENING
     Route: 048
     Dates: start: 20060101
  5. OMEPRAZOLE. [Concomitant]
     Active Substance: OMEPRAZOLE
     Indication: GASTRITIS
     Dosage: IN FASTING
     Route: 048
     Dates: start: 20030101
  6. CYCLOSPORINE. [Suspect]
     Active Substance: CYCLOSPORINE
     Indication: ADVERSE REACTION
     Route: 048
     Dates: start: 20140513, end: 20140518
  7. CYCLOSPORINE. [Suspect]
     Active Substance: CYCLOSPORINE
     Route: 048
     Dates: start: 20140519, end: 20140523
  8. CYCLOSPORINE. [Suspect]
     Active Substance: CYCLOSPORINE
     Dosage: 1 IN 12 HOURS, EVERY OTHER DAY
     Route: 048
     Dates: start: 20140524
  9. ISONIAZID. [Concomitant]
     Active Substance: ISONIAZID
     Indication: ANTIBIOTIC PROPHYLAXIS
     Route: 048
     Dates: start: 20130730
  10. HUMIRA [Suspect]
     Active Substance: ADALIMUMAB
     Indication: PSORIATIC ARTHROPATHY
     Route: 058
     Dates: start: 20131219, end: 20140425
  11. ATENOLOL. [Concomitant]
     Active Substance: ATENOLOL
     Dosage: IN THE MORNING AND IN THE EVENING
     Route: 048

REACTIONS (21)
  - Hyperglycaemia [Recovered/Resolved]
  - Weight decreased [Recovered/Resolved]
  - Skin exfoliation [Recovering/Resolving]
  - Pustular psoriasis [Recovered/Resolved]
  - Hypoglycaemia [Recovered/Resolved]
  - Pyoderma [Unknown]
  - Rash pustular [Not Recovered/Not Resolved]
  - Vomiting [Recovering/Resolving]
  - Pain in extremity [Not Recovered/Not Resolved]
  - Fall [Recovered/Resolved]
  - Alopecia [Recovered/Resolved]
  - Rotator cuff syndrome [Not Recovered/Not Resolved]
  - Renal failure [Recovered/Resolved]
  - Fall [Recovered/Resolved]
  - Blister [Not Recovered/Not Resolved]
  - Hypophagia [Recovered/Resolved]
  - Loss of consciousness [Recovered/Resolved]
  - Blood creatinine increased [Unknown]
  - Depression [Unknown]
  - Rash pustular [Recovering/Resolving]
  - Arthritis [Not Recovered/Not Resolved]

NARRATIVE: CASE EVENT DATE: 201402
